FAERS Safety Report 9424615 (Version 4)
Quarter: 2013Q4

REPORT INFORMATION
  Report Type: Spontaneous
  Country: US (occurrence: US)
  Receive Date: 20130725
  Receipt Date: 20131001
  Transmission Date: 20140711
  Serious: Yes (Death, Hospitalization)
  Sender: FDA-Public Use
  Company Number: 149704

PATIENT
  Age: 44 Year
  Sex: Female
  Weight: 75 kg

DRUGS (1)
  1. LEUCOVORIN [Suspect]
     Indication: NEOPLASM MALIGNANT
     Dosage: 400MG/M2 CYCLICAL (DAY 1 OF EACH CYCLE)
     Dates: start: 20130617

REACTIONS (7)
  - Acute respiratory failure [None]
  - Pneumonia [None]
  - Atelectasis [None]
  - Pleural effusion [None]
  - Pericardial effusion [None]
  - Cardiac tamponade [None]
  - Disease progression [None]
